FAERS Safety Report 16140812 (Version 1)
Quarter: 2019Q2

REPORT INFORMATION
  Report Type: Spontaneous
  Country: FR (occurrence: FR)
  Receive Date: 20190401
  Receipt Date: 20190401
  Transmission Date: 20190711
  Serious: Yes (Hospitalization, Other)
  Sender: FDA-Public Use
  Company Number: FR-MYLANLABS-2019M1029805

PATIENT
  Age: 32 Year
  Sex: Female
  Weight: 93.4 kg

DRUGS (3)
  1. ETHINYLESTRADIOL/LEVONORGESTREL [Suspect]
     Active Substance: ETHINYL ESTRADIOL\LEVONORGESTREL
     Indication: ORAL CONTRACEPTION
     Dosage: 1 DOSAGE FORM, QD
     Route: 048
     Dates: start: 20141101
  2. FLURBIPROFEN. [Suspect]
     Active Substance: FLURBIPROFEN
     Indication: PAIN
     Dosage: 300 MILLIGRAM, QD
     Route: 048
     Dates: start: 20181012
  3. METEOSPASMYL (ALVERINE CITRATE\DIMETHICONE) [Suspect]
     Active Substance: ALVERINE CITRATE\DIMETHICONE
     Indication: ABDOMINAL PAIN
     Dosage: 1 DOSAGE FORM, PRN (60 MG / 300 MG IF NEEDED)
     Route: 048
     Dates: start: 20180912, end: 20181102

REACTIONS (1)
  - Hepatitis [Recovered/Resolved]

NARRATIVE: CASE EVENT DATE: 20181102
